FAERS Safety Report 4277649-2 (Version None)
Quarter: 2004Q1

REPORT INFORMATION
  Report Type: 
  Country: None (occurrence: None)
  Receive Date: 20040121
  Receipt Date: 20040112
  Transmission Date: 20041129
  Serious: Yes (Hospitalization)
  Sender: FDA-Public Use
  Company Number: US-JNJFOC-20030902298

PATIENT
  Age: 58 Year
  Sex: Male

DRUGS (4)
  1. DURAGESIC [Suspect]
     Indication: PAIN
     Dosage: SEE IMAGE
     Route: 062
     Dates: start: 20030701, end: 20030818
  2. DURAGESIC [Suspect]
     Indication: PAIN
     Dosage: SEE IMAGE
     Route: 062
     Dates: start: 20030821, end: 20030913
  3. DURAGESIC [Suspect]
     Indication: PAIN
     Dosage: SEE IMAGE
     Route: 062
     Dates: start: 20031001, end: 20031002
  4. VICODIN [Concomitant]

REACTIONS (3)
  - DRUG INEFFECTIVE [None]
  - FEAR [None]
  - RESPIRATORY DISORDER [None]
